FAERS Safety Report 25671012 (Version 3)
Quarter: 2025Q4

REPORT INFORMATION
  Report Type: Spontaneous
  Country: US (occurrence: US)
  Receive Date: 20250812
  Receipt Date: 20251001
  Transmission Date: 20260118
  Serious: No
  Sender: PFIZER
  Company Number: US-PFIZER INC-202500159970

PATIENT
  Age: 14 Year
  Sex: Male
  Weight: 68.027 kg

DRUGS (3)
  1. GENOTROPIN [Suspect]
     Active Substance: SOMATROPIN
     Indication: Short stature
     Dosage: 2.2MG A DAY, EVERY NIGHT, IN STOMACH OR HIP
     Dates: start: 202507
  2. JORNAY PM EXTENDED-RELEASE [Concomitant]
     Active Substance: METHYLPHENIDATE HYDROCHLORIDE
     Indication: Attention deficit hyperactivity disorder
     Dosage: 40 MG, ONE CAPSULE AT NIGHT
     Route: 048
  3. ASMANEX HFA [Concomitant]
     Active Substance: MOMETASONE FUROATE
     Indication: Asthma
     Dosage: 100 MCG/ACTUATIONS. TAKES MORNING AND NIGHT, ONE PUFF

REACTIONS (4)
  - Drug dose omission by device [Unknown]
  - Wrong technique in device usage process [Unknown]
  - Device breakage [Unknown]
  - Device mechanical issue [Unknown]

NARRATIVE: CASE EVENT DATE: 20250801
